FAERS Safety Report 7376601-8 (Version None)
Quarter: 2011Q1

REPORT INFORMATION
  Report Type: 
  Country: None (occurrence: None)
  Receive Date: 20110325
  Receipt Date: 20110323
  Transmission Date: 20110831
  Serious: Yes (Hospitalization, Other)
  Sender: FDA-Public Use
  Company Number: JP-PFIZER INC-2011056139

PATIENT
  Sex: Male

DRUGS (3)
  1. LOXONIN [Concomitant]
  2. LYRICA [Suspect]
     Dosage: 25 MG, 1X/DAY
     Route: 048
  3. FAMVIR [Concomitant]

REACTIONS (1)
  - EPILEPSY [None]
